FAERS Safety Report 7158474-1 (Version None)
Quarter: 2010Q4

REPORT INFORMATION
  Report Type: 
  Country: None (occurrence: None)
  Receive Date: 20101214
  Receipt Date: 20100728
  Transmission Date: 20110411
  Serious: No
  Sender: FDA-Public Use
  Company Number: US-ASTRAZENECA-2010SE24956

PATIENT
  Age: 84 Year
  Sex: Male
  Weight: 90.7 kg

DRUGS (4)
  1. CRESTOR [Suspect]
     Indication: HYPERCHOLESTEROLAEMIA
     Route: 048
     Dates: start: 20010101, end: 20100525
  2. CRESTOR [Suspect]
     Dosage: ONCE A WEEK
     Route: 048
  3. ALEVE (CAPLET) [Concomitant]
  4. TERAZOSYN [Concomitant]

REACTIONS (5)
  - ANGINA PECTORIS [None]
  - BACK PAIN [None]
  - BLOOD CHOLESTEROL INCREASED [None]
  - CHROMATURIA [None]
  - DRUG INEFFECTIVE [None]
